FAERS Safety Report 9599254 (Version 2)
Quarter: 2014Q1

REPORT INFORMATION
  Report Type: Spontaneous
  Country: US (occurrence: US)
  Receive Date: 20131004
  Receipt Date: 20140225
  Transmission Date: 20141002
  Serious: No
  Sender: FDA-Public Use
  Company Number: US-AMGEN-USASP2013028375

PATIENT
  Age: 60 Year
  Sex: Female
  Weight: 76.64 kg

DRUGS (7)
  1. ENBREL [Suspect]
     Indication: PRODUCT USED FOR UNKNOWN INDICATION
     Dosage: 50 MG, QWK
     Route: 058
  2. PLAQUENIL                          /00072602/ [Concomitant]
     Dosage: 200 MG, UNK
  3. PREDNISONE [Concomitant]
     Dosage: 1 MG, UNK
  4. ADVIL                              /00044201/ [Concomitant]
     Dosage: 200 MG, UNK
  5. MULTIVITAMINS, PLAIN [Concomitant]
     Dosage: UNK
  6. LIPITOR [Concomitant]
     Dosage: 10 MG, UNK
  7. ALLEGRA [Concomitant]
     Dosage: 30 MG, UNK

REACTIONS (1)
  - Sinusitis [Unknown]
